FAERS Safety Report 8535958-2 (Version None)
Quarter: 2012Q3

REPORT INFORMATION
  Report Type: 
  Country: None (occurrence: None)
  Receive Date: 20120725
  Receipt Date: 20120723
  Transmission Date: 20120928
  Serious: Yes (Life-Threatening, Hospitalization)
  Sender: FDA-Public Use
  Company Number: PHHY2012DE063467

PATIENT
  Age: 17 Year
  Sex: Male

DRUGS (3)
  1. RITALIN-SR [Suspect]
     Indication: ATTENTION DEFICIT/HYPERACTIVITY DISORDER
     Dosage: 20 MG PER DAY
     Route: 048
     Dates: start: 20030101
  2. METHYLPHENIDATE HCL [Suspect]
     Indication: ATTENTION DEFICIT/HYPERACTIVITY DISORDER
     Dosage: 10 MG PER DAY
     Route: 048
     Dates: start: 20030101
  3. ASPIRIN [Concomitant]
     Indication: MIGRAINE

REACTIONS (1)
  - ACUTE LYMPHOCYTIC LEUKAEMIA [None]
